FAERS Safety Report 19870284 (Version 2)
Quarter: 2021Q4

REPORT INFORMATION
  Report Type: Spontaneous
  Country: US (occurrence: None)
  Receive Date: 20210922
  Receipt Date: 20211112
  Transmission Date: 20220303
  Serious: Yes (Other)
  Sender: FDA-Public Use
  Company Number: US-ROCHE-2917420

PATIENT
  Age: 59 Year
  Sex: Female
  Weight: 100.7 kg

DRUGS (3)
  1. ACTEMRA [Suspect]
     Active Substance: TOCILIZUMAB
     Indication: Rheumatoid arthritis
     Dosage: ACTPEN 162 MG/0.9 ML
     Route: 058
     Dates: start: 20210316
  2. ACTEMRA [Suspect]
     Active Substance: TOCILIZUMAB
  3. METHOTREXATE [Concomitant]
     Active Substance: METHOTREXATE
     Route: 048

REACTIONS (2)
  - Ophthalmic herpes zoster [Recovered/Resolved with Sequelae]
  - Macular scar [Unknown]

NARRATIVE: CASE EVENT DATE: 20210823
